FAERS Safety Report 17114832 (Version 2)
Quarter: 2020Q1

REPORT INFORMATION
  Report Type: Other
  Country: CA (occurrence: CA)
  Receive Date: 20191205
  Receipt Date: 20200205
  Transmission Date: 20200409
  Serious: Yes (Hospitalization, Other)
  Sender: FDA-Public Use
  Company Number: CA-ASTELLAS-2019US048132

PATIENT
  Age: 40 Year
  Sex: Female

DRUGS (9)
  1. TACROLIMUS. [Suspect]
     Active Substance: TACROLIMUS
     Indication: PANCREAS TRANSPLANT
     Dosage: UNK UNK, UNKNOWN FREQ.
     Route: 065
  2. MYCOPHENOLATE MOFETIL. [Suspect]
     Active Substance: MYCOPHENOLATE MOFETIL
     Route: 048
  3. CICLOSPORIN [Suspect]
     Active Substance: CYCLOSPORINE
     Route: 048
  4. CICLOSPORIN [Suspect]
     Active Substance: CYCLOSPORINE
     Indication: PANCREAS TRANSPLANT
     Route: 048
  5. VORICONAZOLE. [Suspect]
     Active Substance: VORICONAZOLE
     Indication: EVIDENCE BASED TREATMENT
     Route: 048
  6. MYCOPHENOLATE MOFETIL. [Suspect]
     Active Substance: MYCOPHENOLATE MOFETIL
     Indication: PANCREAS TRANSPLANT
     Route: 048
  7. VORICONAZOLE. [Suspect]
     Active Substance: VORICONAZOLE
     Indication: BRONCHOPULMONARY ASPERGILLOSIS
     Route: 048
  8. METHYLPREDNISOLONE. [Concomitant]
     Active Substance: METHYLPREDNISOLONE
     Indication: TRANSPLANT REJECTION
     Route: 065
  9. PREDNISONE. [Suspect]
     Active Substance: PREDNISONE
     Indication: PANCREAS TRANSPLANT
     Dosage: UNK UNK, UNKNOWN FREQ.
     Route: 065

REACTIONS (5)
  - Neutropenia [Recovered/Resolved]
  - Pancreas transplant rejection [Unknown]
  - Coccidioidomycosis [Recovered/Resolved]
  - Product use in unapproved indication [Unknown]
  - Dyschromatopsia [Recovered/Resolved]
